FAERS Safety Report 21738729 (Version 3)
Quarter: 2023Q4

REPORT INFORMATION
  Report Type: Spontaneous
  Country: US (occurrence: US)
  Receive Date: 20221216
  Receipt Date: 20231113
  Transmission Date: 20240110
  Serious: Yes (Other)
  Sender: FDA-Public Use
  Company Number: US-PFIZER INC-PV202200124758

PATIENT
  Age: 73 Year
  Sex: Female

DRUGS (1)
  1. ESTRING [Suspect]
     Active Substance: ESTRADIOL
     Dosage: INSERT 1 RING (2 MG, 7.5MCG/24 HOUR) VAGINALLY EVERY 3 MONTHS
     Route: 067

REACTIONS (3)
  - Dental operation [Unknown]
  - Dental care [Unknown]
  - Loss of personal independence in daily activities [Unknown]
